FAERS Safety Report 6780239-0 (Version None)
Quarter: 2010Q2

REPORT INFORMATION
  Report Type: 
  Country: None (occurrence: None)
  Receive Date: 20100618
  Receipt Date: 20100610
  Transmission Date: 20101027
  Serious: Yes (Other)
  Sender: FDA-Public Use
  Company Number: GB-ABBOTT-09P-167-0496955-00

PATIENT
  Sex: Female

DRUGS (4)
  1. RITONAVIR SOFT GELATIN CAPSULES [Suspect]
     Indication: ANTIRETROVIRAL THERAPY
     Route: 048
     Dates: start: 20070608
  2. PREZISTA [Concomitant]
     Indication: ANTIRETROVIRAL THERAPY
     Dosage: DAILY
     Route: 048
     Dates: start: 20060608
  3. RALTEGRAVIR [Concomitant]
     Indication: ANTIRETROVIRAL THERAPY
     Dosage: DAILY
     Route: 048
     Dates: start: 20060608
  4. INTELENCE [Concomitant]
     Indication: ANTIRETROVIRAL THERAPY
     Dosage: DAILY
     Route: 048
     Dates: start: 20070713

REACTIONS (2)
  - ABORTION SPONTANEOUS [None]
  - CHORIOAMNIONITIS [None]
